FAERS Safety Report 4628586-2 (Version None)
Quarter: 2005Q2

REPORT INFORMATION
  Report Type: 
  Country: None (occurrence: None)
  Receive Date: 20050404
  Receipt Date: 20050323
  Transmission Date: 20051028
  Serious: Yes (Death)
  Sender: FDA-Public Use
  Company Number: JP-2005-004378

PATIENT
  Age: 80 Year
  Sex: Male

DRUGS (4)
  1. SOTALOL HCL [Suspect]
     Indication: VENTRICULAR EXTRASYSTOLES
     Dosage: 80 MG, 2X/DAY, ORAL
     Route: 048
     Dates: start: 20030507, end: 20040804
  2. ZYLORIC ^FAES^ [Concomitant]
  3. FAMOTIDINE [Concomitant]
  4. BLOPRESS (CANDESARTAN CILEXETIL) [Concomitant]

REACTIONS (1)
  - ATRIOVENTRICULAR BLOCK [None]
